FAERS Safety Report 6961769-5 (Version None)
Quarter: 2010Q3

REPORT INFORMATION
  Report Type: 
  Country: None (occurrence: None)
  Receive Date: 20100901
  Receipt Date: 20100818
  Transmission Date: 20110219
  Serious: Yes (Death)
  Sender: FDA-Public Use
  Company Number: IT-ROCHE-723993

PATIENT
  Age: 82 Year
  Sex: Female

DRUGS (2)
  1. CAPECITABINE [Suspect]
     Dosage: TAKEN FOR 14 CONSECUTIVE DAYS WITH CYCLES REPEATED EVERY 3 WEEKS
     Route: 048
  2. IRINOTECAN HCL [Suspect]
     Dosage: FORM: INFUSION, 80 MG/M2/DAY TAKEN ON DAYS 1 AND 8 AS A 3-H IV INFUSION
     Route: 042

REACTIONS (1)
  - NEUTROPENIC SEPSIS [None]
